FAERS Safety Report 5768226-2 (Version None)
Quarter: 2008Q2

REPORT INFORMATION
  Report Type: 
  Country: None (occurrence: None)
  Receive Date: 20080612
  Receipt Date: 20080609
  Transmission Date: 20081010
  Serious: Yes (Hospitalization)
  Sender: FDA-Public Use
  Company Number: JP-MERCK-0805USA04812

PATIENT
  Age: 76 Year
  Sex: Female
  Weight: 50 kg

DRUGS (11)
  1. FOSAMAX [Suspect]
     Indication: OSTEOPOROSIS
     Route: 048
     Dates: start: 20080228, end: 20080306
  2. FOSAMAX [Suspect]
     Route: 048
     Dates: end: 20080416
  3. FOSAMAX [Suspect]
     Route: 048
     Dates: start: 20080417, end: 20080425
  4. PEPCID [Suspect]
     Indication: GASTRITIS
     Route: 048
     Dates: start: 20071214, end: 20071226
  5. GASMOTIN [Suspect]
     Indication: GASTRITIS
     Route: 048
     Dates: start: 20071214, end: 20080425
  6. LANSOPRAZOLE [Suspect]
     Indication: REFLUX OESOPHAGITIS
     Route: 048
     Dates: start: 20071227, end: 20080425
  7. ADALAT [Concomitant]
     Route: 048
  8. BLOPRESS [Concomitant]
     Route: 048
  9. LEVOGLUTAMIDE AND SODIUM GUALENATE [Concomitant]
     Route: 048
  10. HUMACART N [Concomitant]
     Route: 058
  11. HUMALOG [Concomitant]
     Route: 058

REACTIONS (5)
  - ACCIDENTAL OVERDOSE [None]
  - HEPATIC FUNCTION ABNORMAL [None]
  - INAPPROPRIATE SCHEDULE OF DRUG ADMINISTRATION [None]
  - NAUSEA [None]
  - VOMITING [None]
